FAERS Safety Report 9330248 (Version 1)
Quarter: 2013Q2

REPORT INFORMATION
  Report Type: Spontaneous
  Country: US (occurrence: US)
  Receive Date: 20130604
  Receipt Date: 20130604
  Transmission Date: 20140414
  Serious: Yes (Other)
  Sender: FDA-Public Use
  Company Number: US-MYLANLABS-2013S1011654

PATIENT
  Age: 45 Year
  Sex: Female
  Weight: 68.04 kg

DRUGS (1)
  1. LEVOTHYROXINE SODIUM TABLETS, USP [Suspect]
     Indication: HYPOTHYROIDISM
     Route: 048
     Dates: start: 201304

REACTIONS (4)
  - Disturbance in attention [Unknown]
  - Coordination abnormal [Unknown]
  - Pain [Unknown]
  - Reaction to drug excipients [Unknown]
